FAERS Safety Report 6947572-0 (Version None)
Quarter: 2010Q3

REPORT INFORMATION
  Report Type: 
  Country: None (occurrence: None)
  Receive Date: 20100827
  Receipt Date: 20090916
  Transmission Date: 20110219
  Serious: No
  Sender: FDA-Public Use
  Company Number: US-ABBOTT-09P-163-0598362-00

PATIENT
  Sex: Female
  Weight: 40.86 kg

DRUGS (10)
  1. NIASPAN [Suspect]
     Indication: BLOOD CHOLESTEROL INCREASED
     Route: 048
     Dates: start: 20000101
  2. NIASPAN [Suspect]
     Indication: BLOOD TRIGLYCERIDES INCREASED
  3. PREVPAC [Suspect]
     Indication: PEPTIC ULCER
     Route: 048
     Dates: start: 20090801, end: 20090801
  4. PREVPAC [Suspect]
     Indication: HELICOBACTER INFECTION
  5. LIPITOR [Concomitant]
     Indication: BLOOD CHOLESTEROL INCREASED
     Route: 048
  6. ASPIRIN [Concomitant]
     Indication: FLUSHING
     Route: 048
     Dates: end: 20080101
  7. ASPIRIN [Concomitant]
     Indication: CARDIOVASCULAR EVENT PROPHYLAXIS
     Dates: start: 20080101, end: 20080101
  8. ASPIRIN [Concomitant]
     Indication: PROPHYLAXIS
     Dates: start: 20080101
  9. LEVOTHROID [Concomitant]
     Indication: HYPOTHYROIDISM
     Route: 048
  10. LOPRESSOR [Concomitant]
     Indication: HYPERTENSION
     Route: 048

REACTIONS (5)
  - ASTHENIA [None]
  - FLUSHING [None]
  - HELICOBACTER INFECTION [None]
  - NAUSEA [None]
  - PEPTIC ULCER [None]
